FAERS Safety Report 9818901 (Version 2)
Quarter: 2014Q3

REPORT INFORMATION
  Report Type: Spontaneous
  Country: IT (occurrence: IT)
  Receive Date: 20140115
  Receipt Date: 20140716
  Transmission Date: 20150326
  Serious: Yes (Other)
  Sender: FDA-Public Use
  Company Number: IT-PFIZER INC-2014009051

PATIENT
  Age: 42 Year
  Sex: Female

DRUGS (1)
  1. LYRICA [Suspect]
     Active Substance: PREGABALIN
     Indication: BACK PAIN
     Dosage: UNK
     Route: 048

REACTIONS (3)
  - Pain in extremity [Recovering/Resolving]
  - Fluid retention [Recovering/Resolving]
  - Gravitational oedema [Recovering/Resolving]

NARRATIVE: CASE EVENT DATE: 20131107
